FAERS Safety Report 20753149 (Version 2)
Quarter: 2022Q4

REPORT INFORMATION
  Report Type: Spontaneous
  Country: US (occurrence: None)
  Receive Date: 20220426
  Receipt Date: 20221013
  Transmission Date: 20230113
  Serious: Yes (Other)
  Sender: FDA-Public Use
  Company Number: US-ROCHE-3008804

PATIENT
  Sex: Female
  Weight: 68.100 kg

DRUGS (11)
  1. ESBRIET [Suspect]
     Active Substance: PIRFENIDONE
     Indication: Idiopathic pulmonary fibrosis
     Dosage: YES
     Route: 048
  2. ESBRIET [Suspect]
     Active Substance: PIRFENIDONE
     Route: 048
     Dates: start: 2022
  3. NITROGLYCERIN [Concomitant]
     Active Substance: NITROGLYCERIN
     Indication: Chest pain
  4. ATORVASTATIN [Concomitant]
     Active Substance: ATORVASTATIN
     Indication: Prosthesis user
  5. AMBIEN [Concomitant]
     Active Substance: ZOLPIDEM TARTRATE
  6. VITAMIN D3 [Concomitant]
     Active Substance: CHOLECALCIFEROL
  7. COENZYME Q10 [Concomitant]
     Active Substance: DIETARY SUPPLEMENT\UBIDECARENONE
  8. VITAMIN B12 [Concomitant]
     Active Substance: CYANOCOBALAMIN
  9. PLAVIX [Concomitant]
     Active Substance: CLOPIDOGREL BISULFATE
  10. ASPIRIN [Concomitant]
     Active Substance: ASPIRIN
  11. MAGNESIUM [Concomitant]
     Active Substance: MAGNESIUM

REACTIONS (11)
  - Nausea [Unknown]
  - Abdominal pain upper [Unknown]
  - Dizziness [Unknown]
  - Insomnia [Not Recovered/Not Resolved]
  - Fatigue [Unknown]
  - Weight decreased [Unknown]
  - Decreased appetite [Unknown]
  - Myocardial infarction [Unknown]
  - Internal haemorrhage [Recovered/Resolved]
  - Diabetes mellitus [Not Recovered/Not Resolved]
  - Thrombosis [Unknown]

NARRATIVE: CASE EVENT DATE: 20220101
